FAERS Safety Report 4504583-2 (Version None)
Quarter: 2004Q4

REPORT INFORMATION
  Report Type: 
  Country: None (occurrence: None)
  Receive Date: 20041118
  Receipt Date: 20000214
  Transmission Date: 20050328
  Serious: Yes (Death)
  Sender: FDA-Public Use
  Company Number: US-GLAXOSMITHKLINE-A0321142A

PATIENT
  Age: 60 Year
  Sex: Male
  Weight: 83.9 kg

DRUGS (2)
  1. PAXIL [Suspect]
     Indication: ANXIETY
     Dosage: 20MG PER DAY
     Route: 048
     Dates: start: 19980211, end: 19980201
  2. AMBIEN [Concomitant]
     Dates: start: 19980211

REACTIONS (2)
  - COMPLETED SUICIDE [None]
  - MURDER [None]
